FAERS Safety Report 16941767 (Version 1)
Quarter: 2019Q4

REPORT INFORMATION
  Report Type: Spontaneous
  Country: US (occurrence: US)
  Receive Date: 20191020
  Receipt Date: 20191020
  Transmission Date: 20200122
  Serious: Yes (Disabling, Other)
  Sender: FDA-Public Use
  Company Number: None

PATIENT
  Age: 47 Year
  Sex: Male
  Weight: 103.5 kg

DRUGS (1)
  1. LOSARTAN-HCTZ 100-1.5 MG TAB [Suspect]
     Active Substance: HYDROCHLOROTHIAZIDE\LOSARTAN
     Indication: BLOOD CHOLESTEROL INCREASED
     Dosage: ?          QUANTITY:90 CAPSULE(S);?
     Route: 048
     Dates: start: 20190801, end: 20191001

REACTIONS (6)
  - Disorientation [None]
  - Muscle tightness [None]
  - Fatigue [None]
  - Recalled product administered [None]
  - Dizziness [None]
  - Arthralgia [None]

NARRATIVE: CASE EVENT DATE: 20190819
